FAERS Safety Report 7769554-1 (Version None)
Quarter: 2011Q3

REPORT INFORMATION
  Report Type: 
  Country: None (occurrence: None)
  Receive Date: 20110922
  Receipt Date: 20110718
  Transmission Date: 20111222
  Serious: Yes (Other)
  Sender: FDA-Public Use
  Company Number: US-ASTRAZENECA-2011SE42658

PATIENT
  Age: 31 Year
  Sex: Male
  Weight: 131.5 kg

DRUGS (3)
  1. DEPAKOTE [Concomitant]
  2. CLONAZEPAM [Concomitant]
  3. SEROQUEL XR [Suspect]
     Indication: BIPOLAR DISORDER
     Route: 048
     Dates: start: 20100101

REACTIONS (2)
  - WEIGHT INCREASED [None]
  - HYPERTENSION [None]
